FAERS Safety Report 8027630-2 (Version None)
Quarter: 2011Q4

REPORT INFORMATION
  Report Type: 
  Country: None (occurrence: None)
  Receive Date: 20111130
  Receipt Date: 20110808
  Transmission Date: 20120403
  Serious: Yes (Other)
  Sender: FDA-Public Use
  Company Number: US201003008588

PATIENT
  Age: 44 Year
  Sex: Male
  Weight: 75.7 kg

DRUGS (4)
  1. EXANATIDE 10MCG  PEN, DISPOSABLE DEVICE (EXENATIDE PEN (10MCG)) DISPOS [Concomitant]
  2. BYETTA [Suspect]
     Indication: GLUCOSE TOLERANCE IMPAIRED
     Dosage: 10 UG, 2/D, SUBCUTANEOUS
     Route: 058
     Dates: start: 20091207
  3. TRICOR [Concomitant]
  4. LOVAZA [Concomitant]

REACTIONS (13)
  - GASTRITIS [None]
  - DECREASED APPETITE [None]
  - DIARRHOEA [None]
  - WEIGHT DECREASED [None]
  - ABDOMINAL PAIN [None]
  - ABDOMINAL DISCOMFORT [None]
  - OFF LABEL USE [None]
  - DYSGEUSIA [None]
  - BACK PAIN [None]
  - ANXIETY [None]
  - NAUSEA [None]
  - INSOMNIA [None]
  - PANCREATITIS [None]
